FAERS Safety Report 6666807-5 (Version None)
Quarter: 2010Q1

REPORT INFORMATION
  Report Type: 
  Country: None (occurrence: None)
  Receive Date: 20100331
  Receipt Date: 20100316
  Transmission Date: 20100710
  Serious: Yes (Hospitalization)
  Sender: FDA-Public Use
  Company Number: 2010BI009606

PATIENT
  Age: 67 Year
  Sex: Female

DRUGS (7)
  1. ZEVALIN [Suspect]
     Indication: NON-HODGKIN'S LYMPHOMA RECURRENT
     Dosage: 802 MBQ;1X;IV
     Route: 042
     Dates: start: 20100115, end: 20100115
  2. RITUXIMAB (CON.) [Concomitant]
  3. CARMUSTINE (CON.) [Concomitant]
  4. CYTOSINE [Concomitant]
  5. ARABINOSIDE (CON.) [Concomitant]
  6. ETOPOSIDE (CON.) [Concomitant]
  7. MELPHALAN (CON.) [Concomitant]

REACTIONS (5)
  - ANAEMIA [None]
  - CLOSTRIDIUM DIFFICILE COLITIS [None]
  - FEBRILE NEUTROPENIA [None]
  - STOMATITIS [None]
  - THROMBOCYTOPENIA [None]
